FAERS Safety Report 5594107-3 (Version None)
Quarter: 2008Q1

REPORT INFORMATION
  Report Type: 
  Country: None (occurrence: None)
  Receive Date: 20080116
  Receipt Date: 20080109
  Transmission Date: 20080703
  Serious: Yes (Other)
  Sender: FDA-Public Use
  Company Number: US-PFIZER INC-2008002605

PATIENT
  Sex: Male

DRUGS (1)
  1. XANAX [Suspect]

REACTIONS (5)
  - BACK INJURY [None]
  - CHEST PAIN [None]
  - NERVE INJURY [None]
  - PANIC DISORDER [None]
  - SPINAL DISORDER [None]
